FAERS Safety Report 14251565 (Version 1)
Quarter: 2017Q4

REPORT INFORMATION
  Report Type: Spontaneous
  Country: US (occurrence: US)
  Receive Date: 20171205
  Receipt Date: 20171205
  Transmission Date: 20180321
  Serious: No
  Sender: FDA-Public Use
  Company Number: US-LEADIANT BIOSCIENCES INC-2017STPI000480

PATIENT
  Sex: Male

DRUGS (3)
  1. LOMUSTINE. [Concomitant]
     Active Substance: LOMUSTINE
  2. ONDANSETRON [Concomitant]
     Active Substance: ONDANSETRON
  3. MATULANE [Suspect]
     Active Substance: PROCARBAZINE HYDROCHLORIDE
     Indication: BRAIN NEOPLASM MALIGNANT
     Dosage: 100 MG, QD
     Route: 048
     Dates: start: 20170209

REACTIONS (1)
  - Nausea [Unknown]
